FAERS Safety Report 4633413-3 (Version None)
Quarter: 2005Q2

REPORT INFORMATION
  Report Type: 
  Country: None (occurrence: None)
  Receive Date: 20050408
  Receipt Date: 20050329
  Transmission Date: 20051028
  Serious: Yes (Other)
  Sender: FDA-Public Use
  Company Number: 2005051895

PATIENT
  Age: 79 Year
  Sex: Female
  Weight: 56.246 kg

DRUGS (3)
  1. NEURONTIN (GABAPENTIN) [Suspect]
     Indication: ARTHRALGIA
     Dosage: 600MG 3 TIMES DAILY AS NECESSARY (600 MG), ORAL
     Route: 048
     Dates: start: 20040101
  2. TEMAZEPAM [Concomitant]
  3. EZETIMIBE (EZETIMIBE) [Concomitant]

REACTIONS (6)
  - CONDITION AGGRAVATED [None]
  - DIFFICULTY IN WALKING [None]
  - INJURY [None]
  - KNEE ARTHROPLASTY [None]
  - PAIN IN EXTREMITY [None]
  - TENDONITIS [None]
